FAERS Safety Report 9097911 (Version 6)
Quarter: 2015Q3

REPORT INFORMATION
  Report Type: Report from Study
  Country: GB (occurrence: GB)
  Receive Date: 20130212
  Receipt Date: 20150802
  Transmission Date: 20151125
  Serious: Yes (Other)
  Sender: FDA-Public Use
  Company Number: GB-ROCHE-1188782

PATIENT
  Age: 62 Year
  Sex: Female
  Weight: 64.3 kg

DRUGS (3)
  1. VEMURAFENIB [Suspect]
     Active Substance: VEMURAFENIB
     Indication: METASTATIC MALIGNANT MELANOMA
     Dosage: LAST DOSE PRIOR TO SAE: 16/MAY/2012
     Route: 048
     Dates: start: 20120223
  2. RAMIPRIL. [Concomitant]
     Active Substance: RAMIPRIL
     Route: 065
     Dates: start: 2002
  3. VEMURAFENIB [Suspect]
     Active Substance: VEMURAFENIB
     Dosage: LAST DOSE PRIOR TO SAE: 04/FEB/2013
     Route: 048
     Dates: start: 20120517

REACTIONS (1)
  - Mycosis fungoides [Recovered/Resolved]

NARRATIVE: CASE EVENT DATE: 20130104
